FAERS Safety Report 15065384 (Version 1)
Quarter: 2018Q2

REPORT INFORMATION
  Report Type: Spontaneous
  Country: US (occurrence: US)
  Receive Date: 20180626
  Receipt Date: 20180626
  Transmission Date: 20180711
  Serious: No
  Sender: FDA-Public Use
  Company Number: US-GLENMARK PHARMACEUTICALS-2018GMK033997

PATIENT

DRUGS (1)
  1. MOMETASONE FUROATE CREAM USP [Suspect]
     Active Substance: MOMETASONE FUROATE
     Indication: ECZEMA
     Dosage: 1 DF, UNK
     Route: 061

REACTIONS (7)
  - Poor quality drug administered [Unknown]
  - Ocular hyperaemia [Unknown]
  - Product container issue [Unknown]
  - Application site inflammation [Unknown]
  - Product administered at inappropriate site [Unknown]
  - Drug dispensing error [Unknown]
  - Product contamination [Unknown]
